FAERS Safety Report 5849604-X (Version None)
Quarter: 2008Q3

REPORT INFORMATION
  Report Type: 
  Country: None (occurrence: None)
  Receive Date: 20080819
  Receipt Date: 20080809
  Transmission Date: 20090109
  Serious: Yes (Hospitalization)
  Sender: FDA-Public Use
  Company Number: US-ROCHE-556373

PATIENT
  Sex: Female

DRUGS (4)
  1. PEG-INTERFERON A-2A (RO 25-8310) [Suspect]
     Dosage: FORM: PRE-FILLED SYRINGE
     Route: 065
     Dates: start: 20080224, end: 20080801
  2. RIBAVIRIN [Suspect]
     Dosage: 400 MG IN AM, 600 MG IN PM
     Route: 065
     Dates: start: 20080224, end: 20080801
  3. NEUPOGEN [Suspect]
     Indication: DRUG USE FOR UNKNOWN INDICATION
     Dosage: DOSE: 2 IN 1 WEEK
     Route: 065
     Dates: start: 20080318, end: 20080401
  4. AMOXICILLIN [Concomitant]
     Route: 065
     Dates: start: 20080627

REACTIONS (5)
  - ASTHENIA [None]
  - EATING DISORDER [None]
  - HEADACHE [None]
  - VOMITING [None]
  - WHITE BLOOD CELL COUNT INCREASED [None]
